FAERS Safety Report 14624299 (Version 1)
Quarter: 2018Q1

REPORT INFORMATION
  Report Type: Spontaneous
  Country: US (occurrence: US)
  Receive Date: 20180309
  Receipt Date: 20180309
  Transmission Date: 20180509
  Serious: Yes (Other)
  Sender: FDA-Public Use
  Company Number: None

PATIENT
  Age: 33 Month
  Sex: Male

DRUGS (2)
  1. BENEFIX [Suspect]
     Active Substance: COAGULATION FACTOR IX RECOMBINANT HUMAN\ISOPROPYL ALCOHOL
     Route: 042
     Dates: start: 20171220, end: 20171220
  2. BENEFIX [Suspect]
     Active Substance: COAGULATION FACTOR IX RECOMBINANT HUMAN\ISOPROPYL ALCOHOL
     Dates: start: 20171220, end: 20171220

REACTIONS (7)
  - Therapy cessation [None]
  - Crying [None]
  - Oxygen saturation decreased [None]
  - Agitation [None]
  - Infusion related reaction [None]
  - Abdominal pain upper [None]
  - Chest discomfort [None]

NARRATIVE: CASE EVENT DATE: 20171220
